FAERS Safety Report 25228620 (Version 3)
Quarter: 2025Q2

REPORT INFORMATION
  Report Type: Spontaneous
  Country: JP (occurrence: JP)
  Receive Date: 20250423
  Receipt Date: 20250509
  Transmission Date: 20250716
  Serious: Yes (Hospitalization)
  Sender: ABBVIE
  Company Number: JP-ABBVIE-6245289

PATIENT
  Age: 63 Year
  Sex: Male

DRUGS (1)
  1. RINVOQ [Suspect]
     Active Substance: UPADACITINIB
     Indication: Rheumatoid arthritis
     Route: 048
     Dates: start: 202401

REACTIONS (2)
  - Haemophagocytic lymphohistiocytosis [Recovering/Resolving]
  - Viral infection [Recovering/Resolving]

NARRATIVE: CASE EVENT DATE: 20240722
